FAERS Safety Report 14225368 (Version 2)
Quarter: 2018Q1

REPORT INFORMATION
  Report Type: Spontaneous
  Country: US (occurrence: US)
  Receive Date: 20171127
  Receipt Date: 20180222
  Transmission Date: 20180508
  Serious: No
  Sender: FDA-Public Use
  Company Number: US-PFIZER INC-2017506013

PATIENT
  Age: 6 Year
  Sex: Male

DRUGS (1)
  1. GENOTROPIN [Suspect]
     Active Substance: SOMATROPIN
     Indication: HYPOPITUITARISM
     Dosage: UNK

REACTIONS (3)
  - Pain [Recovering/Resolving]
  - Intentional product misuse [Unknown]
  - Crying [Recovering/Resolving]

NARRATIVE: CASE EVENT DATE: 2017
